FAERS Safety Report 12497869 (Version 2)
Quarter: 2016Q3

REPORT INFORMATION
  Report Type: Other
  Country: GB (occurrence: GB)
  Receive Date: 20160625
  Receipt Date: 20160822
  Transmission Date: 20161109
  Serious: Yes (Other)
  Sender: FDA-Public Use
  Company Number: GB-APOTEX-2016AP009316

PATIENT
  Age: 43 Year
  Sex: Male

DRUGS (39)
  1. PAXIL [Suspect]
     Active Substance: PAROXETINE HYDROCHLORIDE
     Dosage: 20 MG, BID
     Route: 048
     Dates: end: 19980706
  2. PAROXETINE. [Suspect]
     Active Substance: PAROXETINE
     Dosage: UNK
     Route: 048
  3. PAXIL [Suspect]
     Active Substance: PAROXETINE HYDROCHLORIDE
     Dosage: 40 MG, DAILY
     Route: 048
  4. ZIMOVANE [Concomitant]
     Active Substance: ZOPICLONE
     Dosage: 2 DF, Q.H.S.
     Route: 065
  5. ZISPIN [Concomitant]
     Active Substance: MIRTAZAPINE
     Dosage: 30 MG AT NIGHT, 15 MG DAILY
     Route: 065
     Dates: start: 2007
  6. DOTHIEPIN [Concomitant]
     Active Substance: DOTHIEPIN\DOTHIEPIN HYDROCHLORIDE
     Indication: PRODUCT USED FOR UNKNOWN INDICATION
     Dosage: 75 MG, Q.H.S.
     Route: 065
     Dates: start: 2006
  7. PAXIL [Suspect]
     Active Substance: PAROXETINE HYDROCHLORIDE
     Dosage: UNK
     Route: 048
     Dates: end: 200011
  8. ZIMOVANE [Concomitant]
     Active Substance: ZOPICLONE
     Dosage: 7.5 MG, DAILY
     Route: 065
     Dates: start: 200501
  9. TEMAZEPAM. [Concomitant]
     Active Substance: TEMAZEPAM
     Indication: PRODUCT USED FOR UNKNOWN INDICATION
     Dosage: UNK
     Route: 065
  10. PAXIL [Suspect]
     Active Substance: PAROXETINE HYDROCHLORIDE
     Indication: DEPRESSION
     Dosage: 20 MG, BID
     Route: 048
     Dates: start: 199705, end: 19970902
  11. PAXIL [Suspect]
     Active Substance: PAROXETINE HYDROCHLORIDE
     Indication: ANXIETY
     Dosage: 20 MG, Q.AM
     Route: 048
     Dates: start: 19970530
  12. PAXIL [Suspect]
     Active Substance: PAROXETINE HYDROCHLORIDE
     Dosage: UNK
     Route: 048
     Dates: start: 19970701
  13. PAXIL [Suspect]
     Active Substance: PAROXETINE HYDROCHLORIDE
     Dosage: 20 MG, DAILY
     Route: 048
     Dates: start: 1998
  14. PAXIL [Suspect]
     Active Substance: PAROXETINE HYDROCHLORIDE
     Dosage: UNK
     Route: 048
     Dates: start: 20060522
  15. ZIRTEK [Concomitant]
     Active Substance: CETIRIZINE HYDROCHLORIDE
     Indication: SEASONAL ALLERGY
     Dosage: 10 MG, DAILY
     Route: 065
  16. ZISPIN [Concomitant]
     Active Substance: MIRTAZAPINE
     Indication: PRODUCT USED FOR UNKNOWN INDICATION
     Dosage: UNK
     Route: 065
     Dates: start: 200501
  17. PAROXETINE. [Suspect]
     Active Substance: PAROXETINE
     Indication: ANXIETY
     Dosage: 20 MG, BID
     Route: 048
     Dates: start: 19970630, end: 19981104
  18. PAXIL [Suspect]
     Active Substance: PAROXETINE HYDROCHLORIDE
     Dosage: UNK
     Route: 048
  19. DIAZEPAM. [Concomitant]
     Active Substance: DIAZEPAM
     Indication: PRODUCT USED FOR UNKNOWN INDICATION
     Dosage: 5 MG, PRN
     Route: 065
     Dates: start: 19980811, end: 20010326
  20. PAXIL [Suspect]
     Active Substance: PAROXETINE HYDROCHLORIDE
     Dosage: 40 MG, QD
     Route: 048
     Dates: start: 19980320
  21. ZIMOVANE [Concomitant]
     Active Substance: ZOPICLONE
     Dosage: 15 MG, Q.H.S.
     Route: 065
     Dates: start: 200412
  22. ZIMOVANE [Concomitant]
     Active Substance: ZOPICLONE
     Dosage: UNK
     Route: 065
  23. ZISPIN [Concomitant]
     Active Substance: MIRTAZAPINE
     Dosage: 30 MG, Q.H.S.
     Route: 065
     Dates: start: 200702
  24. COCODAMOL [Concomitant]
     Active Substance: ACETAMINOPHEN\CODEINE PHOSPHATE
     Indication: PRODUCT USED FOR UNKNOWN INDICATION
     Dosage: UNK
     Route: 065
  25. PAROXETINE. [Suspect]
     Active Substance: PAROXETINE
     Indication: DEPRESSION
     Dosage: 20 MG, QD
     Route: 048
     Dates: start: 19970522
  26. PAROXETINE. [Suspect]
     Active Substance: PAROXETINE
     Dosage: 20 MG, BID
     Route: 048
     Dates: start: 19970701, end: 19980406
  27. PAROXETINE. [Suspect]
     Active Substance: PAROXETINE
     Dosage: 20 MG, DAILY
     Route: 048
     Dates: start: 199804
  28. PAXIL [Suspect]
     Active Substance: PAROXETINE HYDROCHLORIDE
     Dosage: UNK
     Route: 048
     Dates: start: 19971112
  29. PAXIL [Suspect]
     Active Substance: PAROXETINE HYDROCHLORIDE
     Dosage: UNK
     Route: 048
     Dates: start: 19980701
  30. PAXIL [Suspect]
     Active Substance: PAROXETINE HYDROCHLORIDE
     Dosage: REDUCED
     Route: 048
  31. DIAZEPAM. [Concomitant]
     Active Substance: DIAZEPAM
     Dosage: UNK, PRN
     Route: 065
  32. ZIMOVANE [Concomitant]
     Active Substance: ZOPICLONE
     Indication: INSOMNIA
     Dosage: UNK
     Route: 065
  33. PAROXETINE. [Suspect]
     Active Substance: PAROXETINE
     Dosage: UNK
     Route: 048
     Dates: end: 19980508
  34. PAROXETINE. [Suspect]
     Active Substance: PAROXETINE
     Dosage: 10 MG, QD
     Route: 048
     Dates: start: 19980701
  35. PAXIL [Suspect]
     Active Substance: PAROXETINE HYDROCHLORIDE
     Dosage: 40 MG, QD
     Route: 048
     Dates: start: 19980330, end: 200009
  36. PROPANOLOL [Concomitant]
     Active Substance: PROPRANOLOL HYDROCHLORIDE
     Indication: PRODUCT USED FOR UNKNOWN INDICATION
     Dosage: UNK
     Route: 065
  37. ZIMOVANE [Concomitant]
     Active Substance: ZOPICLONE
     Dosage: 15 MG, Q.H.S.
     Route: 065
  38. ZISPIN [Concomitant]
     Active Substance: MIRTAZAPINE
     Dosage: 15 MG, Q.H.S.
     Route: 065
     Dates: start: 200606
  39. DOTHIEPIN [Concomitant]
     Active Substance: DOTHIEPIN\DOTHIEPIN HYDROCHLORIDE
     Dosage: 150 MG, DAILY
     Route: 065
     Dates: start: 2006

REACTIONS (44)
  - Syncope [Unknown]
  - Fatigue [Unknown]
  - Insomnia [Unknown]
  - Dizziness [Unknown]
  - Nausea [Unknown]
  - Sensory disturbance [Unknown]
  - Anger [Unknown]
  - Tearfulness [Unknown]
  - Depression [Unknown]
  - Panic attack [Unknown]
  - Sleep disorder [Unknown]
  - Paraesthesia [Unknown]
  - Agitation [Unknown]
  - Hyperhidrosis [Unknown]
  - Hyperventilation [Unknown]
  - Vertigo [Unknown]
  - Dysgeusia [Unknown]
  - Hypopnoea [Unknown]
  - Dysphagia [Unknown]
  - Salivary hypersecretion [Unknown]
  - Social avoidant behaviour [Unknown]
  - Tremor [Unknown]
  - Drug ineffective [Unknown]
  - Suicidal ideation [Unknown]
  - Influenza [Unknown]
  - Intentional self-injury [Unknown]
  - Memory impairment [Unknown]
  - Incoherent [Unknown]
  - Feeling abnormal [Unknown]
  - Disturbance in attention [Unknown]
  - Lethargy [Unknown]
  - Adjustment disorder [Unknown]
  - Diarrhoea [Unknown]
  - Confusional state [Unknown]
  - Drug dependence [Unknown]
  - Mood swings [Unknown]
  - Hypoacusis [Unknown]
  - Agoraphobia [Unknown]
  - Vomiting [Unknown]
  - Erectile dysfunction [Unknown]
  - Nightmare [Unknown]
  - Anxiety [Unknown]
  - Withdrawal syndrome [Unknown]
  - Heart rate increased [Unknown]

NARRATIVE: CASE EVENT DATE: 19980109
